FAERS Safety Report 9678231 (Version 1)
Quarter: 2013Q4

REPORT INFORMATION
  Report Type: Spontaneous
  Country: US (occurrence: None)
  Receive Date: 20131106
  Receipt Date: 20131106
  Transmission Date: 20140711
  Serious: Yes (Other)
  Sender: FDA-Public Use
  Company Number: 2013AP009475

PATIENT
  Age: 8 Year
  Sex: Male
  Weight: 27 kg

DRUGS (1)
  1. LITHIUM CARBONATE [Suspect]
     Indication: OPPOSITIONAL DEFIANT DISORDER
     Dosage: 600 MG;AM

REACTIONS (8)
  - Nephrogenic diabetes insipidus [None]
  - Renal failure acute [None]
  - Toxicity to various agents [None]
  - Overdose [None]
  - Confusional state [None]
  - Ataxia [None]
  - Nystagmus [None]
  - Continuous haemodiafiltration [None]
